FAERS Safety Report 6299423-8 (Version None)
Quarter: 2009Q3

REPORT INFORMATION
  Report Type: 
  Country: None (occurrence: None)
  Receive Date: 20090806
  Receipt Date: 20090730
  Transmission Date: 20100115
  Serious: Yes (Hospitalization)
  Sender: FDA-Public Use
  Company Number: IT-AVENTIS-200914513EU

PATIENT
  Age: 61 Year
  Sex: Female
  Weight: 66 kg

DRUGS (14)
  1. ENOXAPARIN SODIUM [Suspect]
     Indication: THROMBOSIS PROPHYLAXIS
     Route: 058
     Dates: start: 20090127, end: 20090205
  2. UROTRACTIN [Concomitant]
  3. OMEPRAZOLE [Concomitant]
  4. RANITIDINE [Concomitant]
  5. CEPHALOSPORINS AND RELATED SUBSTANCES [Concomitant]
  6. TACHIPIRINA [Concomitant]
  7. POTASSIUM CHLORIDE [Concomitant]
  8. GENTAMYCIN SULFATE [Concomitant]
  9. ALBUMIN (HUMAN) [Concomitant]
  10. TEICOPLANIN [Concomitant]
  11. FENTANYL [Concomitant]
  12. BARBITURATES [Concomitant]
  13. CISATRACURIUM [Concomitant]
  14. SEVORANE [Concomitant]

REACTIONS (1)
  - HEPATIC ENZYME INCREASED [None]
